FAERS Safety Report 19277976 (Version 3)
Quarter: 2021Q2

REPORT INFORMATION
  Report Type: Report from Study
  Country: JP (occurrence: JP)
  Receive Date: 20210520
  Receipt Date: 20210606
  Transmission Date: 20210717
  Serious: Yes (Hospitalization)
  Sender: FDA-Public Use
  Company Number: JP-JNJFOC-20210530746

PATIENT
  Age: 65 Year
  Sex: Male

DRUGS (11)
  1. ZOLADEX [Concomitant]
     Active Substance: GOSERELIN ACETATE
     Route: 058
     Dates: start: 20210325
  2. CAPIVASERTIB. [Suspect]
     Active Substance: CAPIVASERTIB
     Route: 065
     Dates: start: 20210428, end: 20210511
  3. TAKECAB [Concomitant]
     Active Substance: VONOPRAZAN FUMARATE
     Indication: PROPHYLAXIS
     Route: 048
     Dates: start: 20210414
  4. ABIRATERONE ACETATE. [Suspect]
     Active Substance: ABIRATERONE ACETATE
     Route: 048
     Dates: start: 20210505, end: 20210508
  5. CAPIVASERTIB. [Suspect]
     Active Substance: CAPIVASERTIB
     Route: 065
     Dates: start: 20210421, end: 20210424
  6. CAPIVASERTIB. [Suspect]
     Active Substance: CAPIVASERTIB
     Route: 065
     Dates: start: 20210512
  7. ABIRATERONE ACETATE. [Suspect]
     Active Substance: ABIRATERONE ACETATE
     Route: 048
     Dates: start: 20210512
  8. ABIRATERONE ACETATE. [Suspect]
     Active Substance: ABIRATERONE ACETATE
     Indication: HORMONE-DEPENDENT PROSTATE CANCER
     Route: 048
     Dates: start: 20210414, end: 20210427
  9. ABIRATERONE ACETATE. [Suspect]
     Active Substance: ABIRATERONE ACETATE
     Route: 048
     Dates: start: 20210428, end: 20210501
  10. CAPIVASERTIB. [Suspect]
     Active Substance: CAPIVASERTIB
     Indication: HORMONE-DEPENDENT PROSTATE CANCER
     Route: 065
     Dates: start: 20210414, end: 20210417
  11. ZOLADEX [Concomitant]
     Active Substance: GOSERELIN ACETATE
     Indication: HORMONE-DEPENDENT PROSTATE CANCER
     Route: 058
     Dates: start: 20210225, end: 20210225

REACTIONS (1)
  - Erythema multiforme [Recovered/Resolved]

NARRATIVE: CASE EVENT DATE: 20210425
